FAERS Safety Report 7500897-2 (Version None)
Quarter: 2011Q2

REPORT INFORMATION
  Report Type: 
  Country: None (occurrence: None)
  Receive Date: 20110524
  Receipt Date: 20110517
  Transmission Date: 20111010
  Serious: Yes (Other)
  Sender: FDA-Public Use
  Company Number: B0720615A

PATIENT
  Age: 8 Decade
  Sex: Male

DRUGS (3)
  1. THEOPHYLLINE [Concomitant]
     Route: 065
  2. VALTREX [Suspect]
     Route: 048
  3. UNKNOWN DRUG [Concomitant]
     Route: 065

REACTIONS (1)
  - ALTERED STATE OF CONSCIOUSNESS [None]
